FAERS Safety Report 19997922 (Version 4)
Quarter: 2022Q2

REPORT INFORMATION
  Report Type: Spontaneous
  Country: US (occurrence: US)
  Receive Date: 20211026
  Receipt Date: 20220518
  Transmission Date: 20220721
  Serious: Yes (Hospitalization, Other)
  Sender: FDA-Public Use
  Company Number: US-BAYER-2021A235001

PATIENT
  Sex: Female

DRUGS (11)
  1. STIVARGA [Suspect]
     Active Substance: REGORAFENIB
     Indication: Product used for unknown indication
     Dosage: UNK
     Dates: end: 20211004
  2. LONSURF [Suspect]
     Active Substance: TIPIRACIL HYDROCHLORIDE\TRIFLURIDINE
     Indication: Colon cancer
     Dosage: 60 MG, BID
     Route: 048
     Dates: start: 20211018, end: 20211029
  3. SENOKOT [Concomitant]
     Active Substance: SENNOSIDES
     Dosage: UNK
  4. NEURONTIN [Concomitant]
     Active Substance: GABAPENTIN
     Dosage: UNK
  5. COLACE [Concomitant]
     Active Substance: DOCUSATE SODIUM
     Dosage: UNK
  6. ZOFRAN [Concomitant]
     Active Substance: ONDANSETRON HYDROCHLORIDE
     Dosage: UNK
  7. HYDROXYCHLOROQUINE [Concomitant]
     Active Substance: HYDROXYCHLOROQUINE
     Dosage: UNK
  8. DESYREL [Concomitant]
     Active Substance: TRAZODONE HYDROCHLORIDE
     Dosage: UNK
  9. VITAMIN D3 [Concomitant]
     Active Substance: CHOLECALCIFEROL
     Dosage: UNK
  10. SALAGEN [Concomitant]
     Active Substance: PILOCARPINE HYDROCHLORIDE
     Dosage: UNK
  11. DELTASONE [Concomitant]
     Active Substance: PREDNISONE
     Dosage: UNK

REACTIONS (23)
  - Mass [Not Recovered/Not Resolved]
  - Bone marrow disorder [None]
  - Malignant neoplasm progression [None]
  - Cachexia [None]
  - Asthenia [None]
  - Anaemia [None]
  - Hypotension [None]
  - Blood sodium decreased [Unknown]
  - Full blood count abnormal [None]
  - Weight decreased [Unknown]
  - Hepatic enzyme decreased [Unknown]
  - Arthralgia [Not Recovered/Not Resolved]
  - Dyspnoea [Unknown]
  - Pain [Unknown]
  - Food refusal [Unknown]
  - Gait disturbance [Unknown]
  - Abdominal distension [None]
  - Fatigue [None]
  - Decreased appetite [None]
  - Temperature intolerance [None]
  - Rash [Recovered/Resolved]
  - Pallor [None]
  - Glossitis [None]
